FAERS Safety Report 9046982 (Version 1)
Quarter: 2013Q1

REPORT INFORMATION
  Report Type: Spontaneous
  Country: US (occurrence: US)
  Receive Date: 20130204
  Receipt Date: 20130204
  Transmission Date: 20140127
  Serious: Yes (Hospitalization, Congenital Anomaly, Other)
  Sender: FDA-Public Use
  Company Number: US-ELI_LILLY_AND_COMPANY-US201301010118

PATIENT
  Sex: 0

DRUGS (1)
  1. PROZAC [Suspect]
     Indication: DEPRESSION
     Dosage: 1 DF, UNKNOWN
     Route: 064
     Dates: start: 199502

REACTIONS (8)
  - Pulmonary valve stenosis [Unknown]
  - Asthma [Unknown]
  - Cardiac murmur [Unknown]
  - Pneumothorax [Unknown]
  - Bronchial hyperreactivity [Unknown]
  - Grunting [Unknown]
  - Pallor [Unknown]
  - Foetal exposure during pregnancy [Unknown]
